FAERS Safety Report 9776616 (Version 1)
Quarter: 2013Q4

REPORT INFORMATION
  Report Type: Spontaneous
  Country: US (occurrence: US)
  Receive Date: 20131220
  Receipt Date: 20131220
  Transmission Date: 20140711
  Serious: No
  Sender: FDA-Public Use
  Company Number: US-BIOGENIDEC-2013BI121375

PATIENT
  Sex: Female

DRUGS (3)
  1. TECFIDERA [Suspect]
     Indication: MULTIPLE SCLEROSIS
  2. AVONEX [Concomitant]
     Indication: GASTRIC DISORDER
     Route: 030
     Dates: start: 20050311
  3. AVONEX [Concomitant]
     Indication: FLUSHING
     Route: 030
     Dates: start: 20050311

REACTIONS (3)
  - Cough [Not Recovered/Not Resolved]
  - Gastric disorder [Unknown]
  - Flushing [Unknown]
